FAERS Safety Report 10319690 (Version 2)
Quarter: 2015Q1

REPORT INFORMATION
  Report Type: Other
  Country: US (occurrence: US)
  Receive Date: 20140719
  Receipt Date: 20150109
  Transmission Date: 20150720
  Serious: Yes (Hospitalization, Other)
  Sender: FDA-Public Use
  Company Number: US-GSKPPD-2014GSK011759

PATIENT
  Age: 74 Year
  Sex: Female

DRUGS (11)
  1. TOPROL XL [Concomitant]
     Active Substance: METOPROLOL SUCCINATE
  2. LOVASTATIN. [Concomitant]
     Active Substance: LOVASTATIN
  3. TAMOXIFEN [Concomitant]
     Active Substance: TAMOXIFEN
  4. FUROSEMIDE. [Concomitant]
     Active Substance: FUROSEMIDE
  5. AVANDIA [Suspect]
     Active Substance: ROSIGLITAZONE MALEATE
     Indication: DIABETES MELLITUS
     Dosage: DATE OF AVANDIA USE COULD NOT BE CONFIRMED IN RECORDS REVIEWED.
     Route: 048
  6. UNIRETIC [Concomitant]
     Active Substance: HYDROCHLOROTHIAZIDE\MOEXIPRIL HYDROCHLORIDE
     Dosage: 15/25 MG
  7. TRENTAL [Concomitant]
     Active Substance: PENTOXIFYLLINE
  8. QUININE SULFATE. [Concomitant]
     Active Substance: QUININE SULFATE
  9. AVANDAMET [Suspect]
     Active Substance: METFORMIN HYDROCHLORIDE\ROSIGLITAZONE MALEATE
     Indication: DIABETES MELLITUS
     Dosage: 4/500 BID?DATE OF AVANDAMET USE COULD NOT BE CONFIRMED IN RECORDS REVIEWED.
  10. SYNTHROID [Concomitant]
     Active Substance: LEVOTHYROXINE SODIUM
  11. ASPIRIN. [Concomitant]
     Active Substance: ASPIRIN

REACTIONS (2)
  - Coronary artery disease [Recovered/Resolved]
  - Cardiac failure congestive [Recovered/Resolved]

NARRATIVE: CASE EVENT DATE: 20040620
